FAERS Safety Report 7784972-3 (Version None)
Quarter: 2011Q3

REPORT INFORMATION
  Report Type: 
  Country: None (occurrence: None)
  Receive Date: 20110928
  Receipt Date: 20110808
  Transmission Date: 20111222
  Serious: Yes (Other)
  Sender: FDA-Public Use
  Company Number: PHFR2011GB02736

PATIENT
  Sex: Female

DRUGS (1)
  1. CLOZAPINE [Suspect]
     Route: 048
     Dates: start: 19971230

REACTIONS (4)
  - MEAN CELL HAEMOGLOBIN INCREASED [None]
  - RED BLOOD CELL COUNT DECREASED [None]
  - POLYCYTHAEMIA [None]
  - MEAN CELL VOLUME INCREASED [None]
